FAERS Safety Report 4916979-5 (Version None)
Quarter: 2006Q1

REPORT INFORMATION
  Report Type: 
  Country: None (occurrence: None)
  Receive Date: 20060216
  Receipt Date: 20060216
  Transmission Date: 20060701
  Serious: Yes (Hospitalization, Other)
  Sender: FDA-Public Use
  Company Number: None

PATIENT
  Sex: Male
  Weight: 92.9874 kg

DRUGS (1)
  1. VYTORIN [Suspect]
     Indication: LIPIDS INCREASED
     Dosage: QD PO
     Route: 048
     Dates: start: 20041001

REACTIONS (3)
  - ASTHENIA [None]
  - PAIN IN EXTREMITY [None]
  - POST PROCEDURAL COMPLICATION [None]
